FAERS Safety Report 7018177-0 (Version None)
Quarter: 2010Q3

REPORT INFORMATION
  Report Type: 
  Country: None (occurrence: None)
  Receive Date: 20100928
  Receipt Date: 20100920
  Transmission Date: 20110219
  Serious: Yes (Disabling)
  Sender: FDA-Public Use
  Company Number: PT-TEVA-236392ISR

PATIENT
  Sex: Male
  Weight: 80 kg

DRUGS (8)
  1. BICALUTAMIDE [Suspect]
     Indication: PROSTATE CANCER
     Route: 048
     Dates: start: 20100301, end: 20100309
  2. AMIODARONE HCL [Concomitant]
     Route: 048
     Dates: start: 19990101
  3. BICALUTAMIDE [Concomitant]
     Route: 048
     Dates: start: 20060101, end: 20100228
  4. LYSINE [Concomitant]
     Indication: PAIN
     Route: 048
  5. DIPYRONE TAB [Concomitant]
     Indication: PAIN
     Route: 048
  6. ACETAMINOPHEN [Concomitant]
     Route: 048
  7. FERROUS SULFATE [Concomitant]
     Route: 048
  8. FOLIC ACID [Concomitant]
     Route: 048

REACTIONS (3)
  - BLISTER [None]
  - ERYTHEMA [None]
  - TOXIC SKIN ERUPTION [None]
